FAERS Safety Report 9540647 (Version 1)
Quarter: 2013Q3

REPORT INFORMATION
  Report Type: Spontaneous
  Country: US (occurrence: US)
  Receive Date: 20130920
  Receipt Date: 20130920
  Transmission Date: 20140515
  Serious: Yes (Other)
  Sender: FDA-Public Use
  Company Number: CHPA2013US014095

PATIENT
  Age: 73 Year
  Sex: Female

DRUGS (5)
  1. EXCEDRIN EXTRA STRENGTH [Suspect]
     Indication: HEADACHE
     Dosage: 4 DF, QOD
     Route: 048
  2. EXCEDRIN EXTRA STRENGTH [Suspect]
     Indication: PROPHYLAXIS
     Dosage: 2 DF, TWO OR THREE TIMES A DAY
     Route: 048
  3. EXCEDRIN EXTRA STRENGTH [Suspect]
     Indication: HEADACHE
     Dosage: UNK, UNK
     Route: 048
  4. GLIMEPIRIDE [Suspect]
     Indication: DIABETES MELLITUS
     Dosage: 2 MG, QOD
     Route: 048
  5. GLIMEPIRIDE [Suspect]
     Dosage: 2 MG, QD
     Route: 048

REACTIONS (6)
  - Diabetes mellitus [Not Recovered/Not Resolved]
  - Blood glucose decreased [Recovered/Resolved]
  - Incorrect drug administration duration [Unknown]
  - Off label use [Unknown]
  - Therapeutic response unexpected [Unknown]
  - Therapeutic response decreased [Unknown]
